FAERS Safety Report 6235453-X (Version None)
Quarter: 2009Q2

REPORT INFORMATION
  Report Type: 
  Country: None (occurrence: None)
  Receive Date: 20090615
  Receipt Date: 20090601
  Transmission Date: 20091009
  Serious: Yes (Other)
  Sender: FDA-Public Use
  Company Number: ADE2009-0653

PATIENT
  Age: 74 Year
  Sex: Male

DRUGS (2)
  1. SIMVASTATIN [Suspect]
  2. ROSUVASTATIN CALCIUM [Suspect]

REACTIONS (5)
  - BLOOD CREATINE PHOSPHOKINASE INCREASED [None]
  - MUSCLE NECROSIS [None]
  - MUSCULAR WEAKNESS [None]
  - MYALGIA [None]
  - RESPIRATORY FATIGUE [None]
